FAERS Safety Report 24305015 (Version 2)
Quarter: 2024Q4

REPORT INFORMATION
  Report Type: Spontaneous
  Country: JP (occurrence: JP)
  Receive Date: 20240911
  Receipt Date: 20241025
  Transmission Date: 20250115
  Serious: Yes (Hospitalization)
  Sender: SANDOZ
  Company Number: JP-SANDOZ INC.-SDZ2024JP078996

PATIENT
  Age: 80 Year
  Sex: Female

DRUGS (4)
  1. METHOTREXATE [Suspect]
     Active Substance: METHOTREXATE
     Indication: Rheumatoid arthritis
     Dosage: UNK UNK, NO TREATMENT
     Route: 048
     Dates: start: 202307
  2. METHOTREXATE [Suspect]
     Active Substance: METHOTREXATE
     Dosage: UNK UNK, NO TREATMENT
     Route: 048
  3. METHOTREXATE [Suspect]
     Active Substance: METHOTREXATE
     Dosage: 8 MG, QD
     Route: 048
  4. METHOTREXATE [Suspect]
     Active Substance: METHOTREXATE
     Indication: Rheumatoid arthritis
     Dosage: 8 MG, QW4
     Route: 048
     Dates: start: 202307

REACTIONS (4)
  - Lichen planus [Recovering/Resolving]
  - Stomatitis [Recovering/Resolving]
  - Oral candidiasis [Recovering/Resolving]
  - Product use issue [Unknown]
